FAERS Safety Report 9083251 (Version 1)
Quarter: 2013Q1

REPORT INFORMATION
  Report Type: Report from Study
  Country: US (occurrence: US)
  Receive Date: 20130129
  Receipt Date: 20130129
  Transmission Date: 20140127
  Serious: No
  Sender: FDA-Public Use
  Company Number: US-ABBOTT-12P-163-0948695-00

PATIENT
  Age: 47 Year
  Sex: Female

DRUGS (13)
  1. HUMIRA 40 MG/0.8 ML PEN [Suspect]
     Indication: PUSTULAR PSORIASIS
     Dates: start: 201204
  2. DIOVAN HCTZ [Concomitant]
     Indication: HYPERTENSION
     Dosage: 160/12.5MG DAILY
     Route: 048
  3. GENERIC LIPITOR [Concomitant]
     Indication: BLOOD CHOLESTEROL
     Dosage: 80MG DAILY
     Route: 048
  4. BUPROPION HCL [Concomitant]
     Indication: ANXIETY
     Route: 048
  5. BUPROPION HCL [Concomitant]
     Indication: DEPRESSION
  6. POTASSIUM [Concomitant]
     Indication: BLOOD PRESSURE
     Dosage: 10MEQ DAILY
     Route: 048
  7. OMEPRAZOLE [Concomitant]
     Indication: GASTROOESOPHAGEAL REFLUX DISEASE
     Route: 048
  8. ALLEGRA [Concomitant]
     Indication: HYPERSENSITIVITY
     Dosage: DAILY
     Route: 048
  9. FOLIC ACID [Concomitant]
     Indication: PRODUCT USED FOR UNKNOWN INDICATION
     Dosage: 1MG DAILY
     Route: 048
  10. VITAMIN D [Concomitant]
     Indication: VITAMIN SUPPLEMENTATION
     Dosage: 1000MG DAILY
     Route: 048
  11. CALCIPOTRINE [Concomitant]
     Indication: PSORIASIS
     Dosage: APPLY TO AFFECTED AREA DAILY ON THE WEEKENDS
  12. HALOBETASOP PROPIONATE [Concomitant]
     Indication: PRODUCT USED FOR UNKNOWN INDICATION
     Dosage: APPLY TO AFFECTED AREA DAILY DURING THE WEEK
  13. TRIAMCINOLONE ACETIONIDE [Concomitant]
     Indication: PRODUCT USED FOR UNKNOWN INDICATION
     Dosage: APPLY TO AFFECTED AREA AS NEEDED

REACTIONS (2)
  - Injection site pain [Not Recovered/Not Resolved]
  - Injection site oedema [Not Recovered/Not Resolved]
